FAERS Safety Report 6733262-6 (Version None)
Quarter: 2010Q2

REPORT INFORMATION
  Report Type: 
  Country: None (occurrence: None)
  Receive Date: 20100520
  Receipt Date: 20100511
  Transmission Date: 20101027
  Serious: Yes (Hospitalization, Other)
  Sender: FDA-Public Use
  Company Number: US-ASTRAZENECA-2009UW21048

PATIENT
  Age: 20897 Day
  Sex: Female
  Weight: 119.3 kg

DRUGS (7)
  1. SEROQUEL [Suspect]
     Indication: BIPOLAR DISORDER
     Dosage: 200MG- 400 MG
     Route: 048
     Dates: start: 20060401, end: 20080701
  2. SEROQUEL [Suspect]
     Indication: SCHIZOPHRENIA
     Dosage: 200MG- 400 MG
     Route: 048
     Dates: start: 20060401, end: 20080701
  3. SEROQUEL [Suspect]
     Indication: PSYCHOTIC DISORDER
     Dosage: 200MG- 400 MG
     Route: 048
     Dates: start: 20060401, end: 20080701
  4. ATENOLOL [Concomitant]
     Dates: start: 20080215
  5. AVANDIA [Concomitant]
     Dates: start: 20080215
  6. LEVOTHYROXINE SODIUM [Concomitant]
     Dates: start: 20080215
  7. LISINOPRIL [Concomitant]
     Dates: start: 20080215

REACTIONS (5)
  - AZOTAEMIA [None]
  - CHOLECYSTITIS [None]
  - DIABETES MELLITUS [None]
  - PANCREATITIS [None]
  - RENAL FAILURE ACUTE [None]
